FAERS Safety Report 6334585-5 (Version None)
Quarter: 2009Q4

REPORT INFORMATION
  Report Type: 
  Country: None (occurrence: None)
  Receive Date: 20090827
  Receipt Date: 20090815
  Transmission Date: 20100525
  Serious: Yes (Death, Hospitalization)
  Sender: FDA-Public Use
  Company Number: 2009-03257

PATIENT
  Age: 65 Year
  Sex: Female
  Weight: 72.6 kg

DRUGS (3)
  1. VELCADE [Suspect]
     Indication: ACUTE MYELOID LEUKAEMIA
     Dosage: 1.3 MG/M2, UNK, IV BOLUS
     Route: 040
     Dates: start: 20090724, end: 20090803
  2. CYTARABINE [Suspect]
     Indication: ACUTE MYELOID LEUKAEMIA
     Dosage: 100 MG/M2, UNK, INTRAVENOUS
     Route: 042
     Dates: start: 20090724, end: 20090730
  3. DAUNORUBUCIN          (DAUNORUBICIN) N/A [Suspect]
     Indication: ACUTE MYELOID LEUKAEMIA
     Dosage: 60 MG/M2, UNK, INTRAVENOUS
     Route: 042
     Dates: start: 20090724, end: 20090726

REACTIONS (12)
  - AREFLEXIA [None]
  - BACTERAEMIA [None]
  - BRAIN HERNIATION [None]
  - BRAIN OEDEMA [None]
  - CEREBRAL INFARCTION [None]
  - CEREBRAL ISCHAEMIA [None]
  - HYPOXIA [None]
  - INFECTION [None]
  - NEUTROPHIL COUNT DECREASED [None]
  - PLEURAL EFFUSION [None]
  - PULMONARY OEDEMA [None]
  - SEPTIC SHOCK [None]
